FAERS Safety Report 13982580 (Version 1)
Quarter: 2017Q3

REPORT INFORMATION
  Report Type: Spontaneous
  Country: US (occurrence: US)
  Receive Date: 20170918
  Receipt Date: 20170918
  Transmission Date: 20171128
  Serious: No
  Sender: FDA-Public Use
  Company Number: US-LEADIANT BIOSCIENCES INC-2016STPI000696

PATIENT

DRUGS (8)
  1. BOSWELLIA SERRATA GUM W/CETYL MYRISTOLEATE/CH [Concomitant]
     Active Substance: CETYL MYRISTOLEATE\INDIAN FRANKINCENSE
     Dosage: UNK
     Dates: start: 20160705, end: 20160908
  2. SENALAX                            /00571901/ [Concomitant]
     Dosage: UNK
     Dates: start: 20160705
  3. DOCUSATE SODIUM. [Concomitant]
     Active Substance: DOCUSATE SODIUM
     Dosage: UNK MG, UNK
     Dates: start: 20160705
  4. KEPPRA [Concomitant]
     Active Substance: LEVETIRACETAM
     Dosage: UNK
     Dates: start: 20160705
  5. MATULANE [Suspect]
     Active Substance: PROCARBAZINE HYDROCHLORIDE
     Indication: BRAIN NEOPLASM MALIGNANT
     Dosage: 100 MG, QD
     Route: 048
     Dates: start: 201607
  6. POTASSIUM [Concomitant]
     Active Substance: POTASSIUM
     Dosage: UNK MEQ, UNK
     Dates: start: 20160705
  7. CELEBREX [Concomitant]
     Active Substance: CELECOXIB
     Dosage: UNK MG, UNK
     Dates: start: 20160705
  8. ESTER C                            /00008001/ [Concomitant]
     Dosage: UNK
     Dates: start: 20160705

REACTIONS (1)
  - Pruritus [Not Recovered/Not Resolved]

NARRATIVE: CASE EVENT DATE: 201608
